FAERS Safety Report 21065033 (Version 3)
Quarter: 2022Q3

REPORT INFORMATION
  Report Type: Spontaneous
  Country: JP (occurrence: JP)
  Receive Date: 20220711
  Receipt Date: 20220824
  Transmission Date: 20221027
  Serious: Yes (Hospitalization)
  Sender: FDA-Public Use
  Company Number: JP-ELI_LILLY_AND_COMPANY-JP202207001821

PATIENT
  Age: 55 Year
  Sex: Female
  Weight: 41 kg

DRUGS (7)
  1. VERZENIO [Suspect]
     Active Substance: ABEMACICLIB
     Indication: Breast cancer recurrent
     Dosage: 300 MG, UNKNOWN
     Route: 048
     Dates: start: 20220616, end: 20220622
  2. OXYCODONE [Concomitant]
     Active Substance: OXYCODONE
     Indication: Pain
     Dosage: 20 MG, UNKNOWN
     Route: 048
  3. ZICTHORU [Concomitant]
     Indication: Pain
     Dosage: 150 MG, UNKNOWN
     Route: 003
  4. SYMPROIC [Concomitant]
     Active Substance: NALDEMEDINE
     Indication: Constipation
     Dosage: 0.2 MG, UNKNOWN
     Route: 048
  5. MAGNESIUM OXIDE [Concomitant]
     Active Substance: MAGNESIUM OXIDE
     Indication: Constipation
     Dosage: 990 MG, UNKNOWN
     Route: 048
  6. FERROUS SULFATE [Concomitant]
     Active Substance: FERROUS SULFATE
     Indication: Iron deficiency anaemia
     Dosage: 105 MG, UNKNOWN
     Route: 048
  7. URSO [Concomitant]
     Active Substance: URSODIOL
     Dosage: 300 MG, UNKNOWN
     Route: 048

REACTIONS (2)
  - Hepatic function abnormal [Recovered/Resolved]
  - Off label use [Unknown]

NARRATIVE: CASE EVENT DATE: 20220616
